FAERS Safety Report 6197075-9 (Version None)
Quarter: 2009Q2

REPORT INFORMATION
  Report Type: 
  Country: None (occurrence: None)
  Receive Date: 20090520
  Receipt Date: 20090506
  Transmission Date: 20091009
  Serious: Yes (Other)
  Sender: FDA-Public Use
  Company Number: NL-GENENTECH-283051

PATIENT

DRUGS (1)
  1. RITUXIMAB [Suspect]
     Indication: RHEUMATOID ARTHRITIS

REACTIONS (18)
  - BLADDER NEOPLASM [None]
  - DEPRESSION [None]
  - DYSPNOEA [None]
  - EPSTEIN-BARR VIRUS INFECTION [None]
  - ERYTHEMA [None]
  - FATIGUE [None]
  - FLUSHING [None]
  - HEADACHE [None]
  - HYPERTENSION [None]
  - HYPOTENSION [None]
  - LYMPHOMA [None]
  - MYOCARDIAL INFARCTION [None]
  - NAUSEA [None]
  - PNEUMOCYSTIS JIROVECI PNEUMONIA [None]
  - PNEUMONIA [None]
  - PRURITUS [None]
  - SOMNOLENCE [None]
  - URINARY TRACT INFECTION [None]
